FAERS Safety Report 5821342-9 (Version None)
Quarter: 2008Q3

REPORT INFORMATION
  Report Type: 
  Country: None (occurrence: None)
  Receive Date: 20080724
  Receipt Date: 20080717
  Transmission Date: 20090109
  Serious: Yes (Hospitalization)
  Sender: FDA-Public Use
  Company Number: JP-MERCK-0806USA02979

PATIENT
  Age: 68 Year
  Sex: Female
  Weight: 44 kg

DRUGS (3)
  1. HYZAAR [Suspect]
     Indication: HYPERTENSION
     Route: 048
     Dates: start: 20071117, end: 20080528
  2. THEO-DUR [Concomitant]
     Indication: ASTHMA
     Route: 048
     Dates: start: 20070901, end: 20080530
  3. SEFTAC [Concomitant]
     Indication: GASTRITIS
     Route: 048
     Dates: start: 20070901, end: 20080530

REACTIONS (1)
  - ACUTE MYOCARDIAL INFARCTION [None]
